FAERS Safety Report 24004882 (Version 1)
Quarter: 2024Q2

REPORT INFORMATION
  Report Type: Spontaneous
  Country: US (occurrence: US)
  Receive Date: 20240624
  Receipt Date: 20240624
  Transmission Date: 20240715
  Serious: No
  Sender: FDA-Public Use
  Company Number: US-BRISTOL-MYERS SQUIBB COMPANY-2024-099911

PATIENT
  Age: 41 Year
  Sex: Female
  Weight: 86.18 kg

DRUGS (1)
  1. LENALIDOMIDE [Suspect]
     Active Substance: LENALIDOMIDE
     Indication: Plasma protein metabolism disorder
     Route: 048
     Dates: start: 20240322

REACTIONS (2)
  - Blood potassium decreased [Unknown]
  - Off label use [Unknown]
